FAERS Safety Report 10203028 (Version 1)
Quarter: 2014Q2

REPORT INFORMATION
  Report Type: Spontaneous
  Country: AU (occurrence: AU)
  Receive Date: 20140529
  Receipt Date: 20140529
  Transmission Date: 20141212
  Serious: Yes (Congenital Anomaly)
  Sender: FDA-Public Use
  Company Number: PHHY2014AU060934

PATIENT
  Sex: Female

DRUGS (3)
  1. CARBIMAZOLE [Suspect]
     Dosage: MATERNAL DOSE: 30 MG GRADUALLY DECREASED TO 15 MG
     Route: 064
  2. FOLIC ACID [Suspect]
     Route: 064
  3. MULTIVIT//VITAMINS NOS [Suspect]
     Route: 064

REACTIONS (9)
  - Choanal atresia [Unknown]
  - Congenital nose malformation [Unknown]
  - Congenital eye disorder [Unknown]
  - Ventricular septal defect [Recovered/Resolved]
  - Hypodontia [Recovered/Resolved]
  - Microtia [Unknown]
  - Foetal exposure during pregnancy [Unknown]
  - Maternal drugs affecting foetus [None]
  - Congenital eyelid malformation [None]
